FAERS Safety Report 5016732-0 (Version None)
Quarter: 2006Q2

REPORT INFORMATION
  Report Type: 
  Country: None (occurrence: None)
  Receive Date: 20060602
  Receipt Date: 20051025
  Transmission Date: 20061013
  Serious: No
  Sender: FDA-Public Use
  Company Number: US-GLAXOSMITHKLINE-A0579566A

PATIENT
  Age: 9 Month
  Sex: Female

DRUGS (2)
  1. AUGMENTIN ES-600 [Suspect]
     Indication: EAR INFECTION
     Dosage: 2.5TSP TWICE PER DAY
     Route: 048
     Dates: start: 20051021, end: 20051024
  2. NO CONCURRENT MEDICATION [Concomitant]

REACTIONS (2)
  - ACCIDENTAL OVERDOSE [None]
  - DIARRHOEA [None]
